FAERS Safety Report 9240525 (Version 1)
Quarter: 2013Q2

REPORT INFORMATION
  Report Type: Spontaneous
  Country: US (occurrence: None)
  Receive Date: 20130412
  Receipt Date: 20130412
  Transmission Date: 20140414
  Serious: Yes (Other)
  Sender: FDA-Public Use
  Company Number: 2013035306

PATIENT
  Sex: Male
  Weight: 5.44 kg

DRUGS (3)
  1. BERINERT (CI ESTERASE INHIBITOR, HUMAN) [Suspect]
     Indication: HEREDITARY ANGIOEDEMA
  2. BERINERT (CI ESTERASE INHIBITOR, HUMAN) [Suspect]
     Indication: PROPHYLAXIS
  3. CINRYZE (C1 ESTERASE INHIBITOR (HUMAN)) [Suspect]
     Indication: PROPHYLAXIS

REACTIONS (1)
  - No adverse event [None]
